FAERS Safety Report 12293816 (Version 1)
Quarter: 2016Q2

REPORT INFORMATION
  Report Type: Spontaneous
  Country: PL (occurrence: PL)
  Receive Date: 20160421
  Receipt Date: 20160421
  Transmission Date: 20160815
  Serious: Yes (Other)
  Sender: FDA-Public Use
  Company Number: PL-ROCHE-1745679

PATIENT
  Age: 37 Year
  Sex: Male

DRUGS (15)
  1. OXIS [Concomitant]
     Active Substance: FORMOTEROL FUMARATE
  2. XOLAIR [Suspect]
     Active Substance: OMALIZUMAB
     Route: 058
     Dates: start: 20130920
  3. SINGULAIR [Concomitant]
     Active Substance: MONTELUKAST SODIUM
  4. VENTOLIN [Concomitant]
     Active Substance: ALBUTEROL SULFATE
  5. CLARITINE [Concomitant]
     Active Substance: LORATADINE
  6. DIURESIN [Concomitant]
     Active Substance: INDAPAMIDE
  7. EUPHYLLIN CR [Concomitant]
  8. XOLAIR [Suspect]
     Active Substance: OMALIZUMAB
     Indication: ASTHMA
     Route: 065
     Dates: start: 20090701, end: 20091222
  9. PULMICORT TURBUHALER [Concomitant]
     Active Substance: BUDESONIDE
  10. CORTARE [Concomitant]
     Active Substance: BECLOMETHASONE DIPROPIONATE
  11. FLIXOTIDE [Concomitant]
     Active Substance: FLUTICASONE PROPIONATE
  12. ATIMOS [Concomitant]
     Active Substance: FORMOTEROL
  13. ISOPTIN - SLOW RELEASE [Concomitant]
  14. POLCORTOLON (POLAND) [Concomitant]
  15. ENCORTON [Concomitant]
     Active Substance: PREDNISONE

REACTIONS (6)
  - Asthma [Unknown]
  - Weight decreased [Unknown]
  - Neutrophil count increased [Unknown]
  - Oedema peripheral [Unknown]
  - Chest pain [Recovered/Resolved]
  - Infection [Unknown]

NARRATIVE: CASE EVENT DATE: 2014
